FAERS Safety Report 25940337 (Version 2)
Quarter: 2025Q4

REPORT INFORMATION
  Report Type: Report from Study
  Country: US (occurrence: US)
  Receive Date: 20251020
  Receipt Date: 20251023
  Transmission Date: 20260118
  Serious: Yes (Hospitalization)
  Sender: EMD SERONO INC
  Company Number: US-Merck Healthcare KGaA-2025051977

PATIENT
  Age: 44 Year
  Sex: Female

DRUGS (2)
  1. MAVENCLAD [Suspect]
     Active Substance: CLADRIBINE
     Indication: Multiple sclerosis
     Dosage: YEAR ONE MONTH ONE THERAPY
  2. MAVENCLAD [Suspect]
     Active Substance: CLADRIBINE
     Dosage: YEAR ONE MONTH TWO THERAPY
     Dates: start: 20250521, end: 20250525

REACTIONS (15)
  - Dyspnoea [Unknown]
  - Palpitations [Unknown]
  - Postural orthostatic tachycardia syndrome [Unknown]
  - Stiff person syndrome [Unknown]
  - Loss of consciousness [Unknown]
  - Autonomic nervous system imbalance [Unknown]
  - Blood glucose decreased [Unknown]
  - Blood pressure decreased [Unknown]
  - Tachycardia [Unknown]
  - Multiple sclerosis relapse [Unknown]
  - Pallor [Unknown]
  - Cyanosis [Unknown]
  - Infectious mononucleosis [Unknown]
  - Urinary tract infection [Unknown]
  - Gastroenteritis viral [Unknown]

NARRATIVE: CASE EVENT DATE: 20250804
